FAERS Safety Report 9390479 (Version 2)
Quarter: 2013Q4

REPORT INFORMATION
  Report Type: Spontaneous
  Country: US (occurrence: US)
  Receive Date: 20130709
  Receipt Date: 20131114
  Transmission Date: 20140711
  Serious: Yes (Hospitalization)
  Sender: FDA-Public Use
  Company Number: US-BIOGENIDEC-2013BI060786

PATIENT
  Age: 50 Year
  Sex: Female

DRUGS (1)
  1. AVONEX [Suspect]
     Indication: MULTIPLE SCLEROSIS
     Route: 030
     Dates: start: 19990625

REACTIONS (8)
  - Plastic surgery [Recovered/Resolved]
  - Knee arthroplasty [Recovered/Resolved]
  - Suture rupture [Recovered/Resolved]
  - Trigger finger [Recovered/Resolved]
  - Fall [Recovered/Resolved]
  - Rotator cuff syndrome [Not Recovered/Not Resolved]
  - Wound dehiscence [Recovered/Resolved]
  - Neuralgia [Recovered/Resolved]
